FAERS Safety Report 15074146 (Version 2)
Quarter: 2018Q3

REPORT INFORMATION
  Report Type: Spontaneous
  Country: ES (occurrence: ES)
  Receive Date: 20180627
  Receipt Date: 20180726
  Transmission Date: 20181010
  Serious: Yes (Hospitalization, Other)
  Sender: FDA-Public Use
  Company Number: ES-BAYER-2018-119155

PATIENT
  Age: 50 Year
  Sex: Female

DRUGS (4)
  1. CLOPIDOGREL [Interacting]
     Active Substance: CLOPIDOGREL BISULFATE
     Indication: ANTIPLATELET THERAPY
     Dosage: 1 MG/KG, BID
  2. ACETYLSALICYLIC ACID({=100 MG) [Suspect]
     Active Substance: ASPIRIN
     Indication: ANTIPLATELET THERAPY
     Dosage: 1 MG/KG, BID
  3. ENOXAPARIN [Interacting]
     Active Substance: ENOXAPARIN
     Indication: ANTICOAGULANT THERAPY
     Dosage: 1 MG/KG, BID
     Route: 058
  4. ABCIXIMAB [Suspect]
     Active Substance: ABCIXIMAB

REACTIONS (7)
  - Ecchymosis [Recovered/Resolved]
  - Hypotension [Unknown]
  - Petechiae [Recovered/Resolved]
  - Labelled drug-drug interaction medication error [None]
  - Anaemia [None]
  - Melaena [None]
  - Thrombocytopenia [Recovered/Resolved]
